FAERS Safety Report 21381161 (Version 1)
Quarter: 2022Q3

REPORT INFORMATION
  Report Type: Spontaneous
  Country: US (occurrence: None)
  Receive Date: 20220926
  Receipt Date: 20220926
  Transmission Date: 20221027
  Serious: Yes (Other)
  Sender: FDA-Public Use
  Company Number: None

PATIENT
  Age: 67 Year
  Sex: Female
  Weight: 73.8 kg

DRUGS (10)
  1. PAXLOVID [Suspect]
     Active Substance: NIRMATRELVIR\RITONAVIR
     Indication: COVID-19
     Route: 048
     Dates: start: 20220610, end: 20220615
  2. LISINOPRIL [Concomitant]
     Active Substance: LISINOPRIL
  3. VICODIN [Concomitant]
     Active Substance: ACETAMINOPHEN\HYDROCODONE BITARTRATE
  4. TIZANIDINE [Concomitant]
     Active Substance: TIZANIDINE
  5. ALPRAZOLAM [Concomitant]
     Active Substance: ALPRAZOLAM
  6. IBUPROFEN [Concomitant]
     Active Substance: IBUPROFEN
  7. ZINC [Concomitant]
     Active Substance: ZINC
  8. Centrum Multi [Concomitant]
  9. OMEGA 3 [Concomitant]
     Active Substance: CAPSAICIN
  10. VITAMIN D NOS [Concomitant]
     Active Substance: VITAMIN D NOS

REACTIONS (2)
  - Dysgeusia [None]
  - COVID-19 [None]

NARRATIVE: CASE EVENT DATE: 20220911
